FAERS Safety Report 18427611 (Version 1)
Quarter: 2020Q4

REPORT INFORMATION
  Report Type: Spontaneous
  Country: US (occurrence: US)
  Receive Date: 20201026
  Receipt Date: 20201026
  Transmission Date: 20210114
  Serious: No
  Sender: FDA-Public Use
  Company Number: US-PFIZER INC-2020411107

PATIENT
  Age: 46 Year
  Sex: Female
  Weight: 113.4 kg

DRUGS (1)
  1. NICOTINE. [Suspect]
     Active Substance: NICOTINE
     Dosage: UNK

REACTIONS (1)
  - Drug ineffective [Unknown]
